FAERS Safety Report 13946018 (Version 1)
Quarter: 2017Q3

REPORT INFORMATION
  Report Type: Spontaneous
  Country: US (occurrence: US)
  Receive Date: 20170907
  Receipt Date: 20170907
  Transmission Date: 20171128
  Serious: Yes (Hospitalization)
  Sender: FDA-Public Use
  Company Number: US-ACCORD-058103

PATIENT
  Age: 28 Year
  Sex: Male

DRUGS (11)
  1. CYCLOBENZAPRINE. [Interacting]
     Active Substance: CYCLOBENZAPRINE
     Indication: PRODUCT USED FOR UNKNOWN INDICATION
     Route: 048
  2. VALPROIC ACID. [Concomitant]
     Active Substance: VALPROIC ACID
     Route: 048
  3. HYDROXYZINE [Concomitant]
     Active Substance: HYDROXYZINE HYDROCHLORIDE
     Route: 048
  4. MALIC ACID [Interacting]
     Active Substance: MALIC ACID
     Indication: NUTRITIONAL SUPPLEMENTATION
  5. BUPROPION/BUPROPION HYDROCHLORIDE [Interacting]
     Active Substance: BUPROPION HYDROCHLORIDE
     Indication: PRODUCT USED FOR UNKNOWN INDICATION
     Dosage: THEN BUPROPRION 100 MG ORALLY EVERY 12 HOURS
     Route: 048
  6. NATROL (OXITRIPTAN) [Interacting]
     Active Substance: OXITRIPTAN
     Indication: NUTRITIONAL SUPPLEMENTATION
  7. SERTRALINE [Suspect]
     Active Substance: SERTRALINE HYDROCHLORIDE
     Indication: PRODUCT USED FOR UNKNOWN INDICATION
     Dosage: 200 MG ORALLY EVERY MORNING
     Route: 048
  8. SILDENAFIL. [Concomitant]
     Active Substance: SILDENAFIL
     Dosage: AS NEEDED
     Route: 048
  9. PRAZOSIN. [Concomitant]
     Active Substance: PRAZOSIN
     Dosage: AT BEDTIME
     Route: 048
  10. LINOLEIC ACID [Interacting]
     Active Substance: LINOLEIC ACID
     Indication: NUTRITIONAL SUPPLEMENTATION
  11. GLUTAMIC ACID [Interacting]
     Active Substance: GLUTAMIC ACID
     Indication: NUTRITIONAL SUPPLEMENTATION

REACTIONS (4)
  - Rhabdomyolysis [Recovered/Resolved]
  - Compartment syndrome [Recovered/Resolved]
  - Drug interaction [Unknown]
  - Serotonin syndrome [Recovered/Resolved]
